FAERS Safety Report 24197423 (Version 5)
Quarter: 2025Q2

REPORT INFORMATION
  Report Type: Report from Study
  Country: CA (occurrence: CA)
  Receive Date: 20240810
  Receipt Date: 20250624
  Transmission Date: 20250717
  Serious: Yes (Life-Threatening, Other)
  Sender: HLS THERAPEUTICS
  Company Number: CA-HLS-202401802

PATIENT
  Age: 72 Year
  Sex: Male

DRUGS (23)
  1. CLOZARIL [Suspect]
     Active Substance: CLOZAPINE
     Indication: Psychotic symptom
     Route: 048
     Dates: start: 20130222
  2. CLOZARIL [Suspect]
     Active Substance: CLOZAPINE
     Indication: Psychotic symptom
     Route: 065
     Dates: start: 20240318
  3. AA levocarb cr 200+50 mg [Concomitant]
     Indication: Product used for unknown indication
     Route: 065
     Dates: start: 20240408
  4. AA levocarb cr 100+25 mg [Concomitant]
     Indication: Product used for unknown indication
     Route: 065
     Dates: start: 20240408
  5. Lamisil topique 1% [Concomitant]
     Indication: Product used for unknown indication
     Route: 065
     Dates: start: 20240607
  6. Tamsulosin cr 0.4 mg [Concomitant]
     Indication: Product used for unknown indication
     Route: 065
     Dates: start: 20240613
  7. Erythromycin 0.5% [Concomitant]
     Indication: Product used for unknown indication
     Route: 047
     Dates: start: 20240718
  8. EFFEXOR [Concomitant]
     Active Substance: VENLAFAXINE HYDROCHLORIDE
     Indication: Product used for unknown indication
     Route: 065
     Dates: start: 20230919
  9. DULCOEASE [Concomitant]
     Active Substance: DOCUSATE SODIUM
     Indication: Product used for unknown indication
     Route: 065
     Dates: start: 20230921
  10. MYRBETRIQ [Concomitant]
     Active Substance: MIRABEGRON
     Indication: Product used for unknown indication
     Route: 065
     Dates: start: 20230921
  11. Sandoz fesoterodine [Concomitant]
     Indication: Product used for unknown indication
     Route: 065
     Dates: start: 20230921
  12. VITAMIN D3 [Concomitant]
     Active Substance: CHOLECALCIFEROL
     Indication: Product used for unknown indication
     Route: 065
     Dates: start: 20230921
  13. PANTOPRAZOLE SODIUM [Concomitant]
     Active Substance: PANTOPRAZOLE SODIUM
     Route: 065
     Dates: start: 20230921
  14. DDAVP [Concomitant]
     Active Substance: DESMOPRESSIN ACETATE
     Indication: Product used for unknown indication
     Route: 065
     Dates: start: 20240116
  15. JUBLIA [Concomitant]
     Active Substance: EFINACONAZOLE
     Indication: Product used for unknown indication
     Route: 065
     Dates: start: 20220825
  16. REMERON [Concomitant]
     Active Substance: MIRTAZAPINE
     Indication: Product used for unknown indication
     Route: 065
     Dates: start: 20230918
  17. RESTORIL [Concomitant]
     Active Substance: TEMAZEPAM
     Indication: Product used for unknown indication
     Route: 065
     Dates: start: 20230918
  18. ATIVAN [Concomitant]
     Active Substance: LORAZEPAM
     Indication: Product used for unknown indication
     Route: 065
     Dates: start: 20230918
  19. Apo Levocarb 100+25mg [Concomitant]
     Indication: Product used for unknown indication
     Route: 065
     Dates: start: 20240312
  20. Apo Levocarb 100+25mg [Concomitant]
     Indication: Product used for unknown indication
     Route: 065
     Dates: start: 20240408
  21. Relaxa [Concomitant]
     Indication: Product used for unknown indication
     Route: 065
     Dates: start: 20240314
  22. Neupro 8mg timber [Concomitant]
     Indication: Product used for unknown indication
     Route: 065
     Dates: start: 20240408
  23. Neupro 2mg timber [Concomitant]
     Indication: Product used for unknown indication
     Route: 065
     Dates: start: 20240408

REACTIONS (5)
  - Choroid melanoma [Recovered/Resolved]
  - COVID-19 [Unknown]
  - Metastases to liver [Not Recovered/Not Resolved]
  - Malignant melanoma [Not Recovered/Not Resolved]
  - Off label use [Unknown]

NARRATIVE: CASE EVENT DATE: 20240618
